FAERS Safety Report 15565597 (Version 1)
Quarter: 2018Q4

REPORT INFORMATION
  Report Type: Spontaneous
  Country: US (occurrence: US)
  Receive Date: 20181025
  Receipt Date: 20181025
  Transmission Date: 20190205
  Serious: Yes (Disabling)
  Sender: FDA-Public Use
  Company Number: None

PATIENT
  Age: 52 Year
  Sex: Female
  Weight: 51.71 kg

DRUGS (1)
  1. XHANCE [Suspect]
     Active Substance: FLUTICASONE PROPIONATE
     Indication: CHRONIC SINUSITIS
     Route: 045
     Dates: start: 20180901, end: 20180908

REACTIONS (1)
  - Dry eye [None]

NARRATIVE: CASE EVENT DATE: 20180908
